FAERS Safety Report 17599203 (Version 3)
Quarter: 2021Q4

REPORT INFORMATION
  Report Type: Spontaneous
  Country: US (occurrence: US)
  Receive Date: 20200330
  Receipt Date: 20211129
  Transmission Date: 20220303
  Serious: Yes (Other)
  Sender: FDA-Public Use
  Company Number: US-PFIZER INC-2020080460

PATIENT
  Age: 56 Year
  Sex: Female
  Weight: 106.14 kg

DRUGS (2)
  1. LYRICA [Suspect]
     Active Substance: PREGABALIN
     Indication: Major depression
     Dosage: 150 MG, THREE TIMES A DAY
     Route: 048
  2. LYRICA [Suspect]
     Active Substance: PREGABALIN
     Indication: Fibromyalgia
     Dosage: UNK, TWO TIMES A DAY

REACTIONS (6)
  - Pneumonia [Unknown]
  - Influenza [Unknown]
  - Seizure [Unknown]
  - Lack of spontaneous speech [Unknown]
  - Drug ineffective [Unknown]
  - Tremor [Unknown]

NARRATIVE: CASE EVENT DATE: 20211115
